FAERS Safety Report 6728206-7 (Version None)
Quarter: 2010Q2

REPORT INFORMATION
  Report Type: 
  Country: None (occurrence: None)
  Receive Date: 20100517
  Receipt Date: 20100511
  Transmission Date: 20101027
  Serious: Yes (Other)
  Sender: FDA-Public Use
  Company Number: B0653111A

PATIENT
  Age: 84 Year
  Sex: Male

DRUGS (2)
  1. AVODART [Suspect]
     Indication: PROSTATIC ADENOMA
     Dosage: .5MG PER DAY
     Route: 065
     Dates: start: 20100201, end: 20100501
  2. TAMSULOSIN HCL [Concomitant]
     Indication: DRUG USE FOR UNKNOWN INDICATION
     Route: 065
     Dates: start: 20100201

REACTIONS (1)
  - PROSTATOMEGALY [None]
